FAERS Safety Report 22150699 (Version 2)
Quarter: 2023Q4

REPORT INFORMATION
  Report Type: Report from Study
  Country: US (occurrence: US)
  Receive Date: 20230329
  Receipt Date: 20231108
  Transmission Date: 20240110
  Serious: Yes (Hospitalization, Other)
  Sender: FDA-Public Use
  Company Number: US-TAKEDA-2023TUS031104

PATIENT
  Age: 55 Year
  Sex: Male

DRUGS (13)
  1. TEDUGLUTIDE [Suspect]
     Active Substance: TEDUGLUTIDE
     Indication: Short-bowel syndrome
     Dosage: 5 MILLIGRAM, QD
     Route: 042
     Dates: start: 20170922, end: 20180827
  2. TEDUGLUTIDE [Suspect]
     Active Substance: TEDUGLUTIDE
     Indication: Short-bowel syndrome
     Dosage: 5 MILLIGRAM, QD
     Route: 042
     Dates: start: 20170922, end: 20180827
  3. TEDUGLUTIDE [Suspect]
     Active Substance: TEDUGLUTIDE
     Indication: Short-bowel syndrome
     Dosage: 5 MILLIGRAM, QD
     Route: 042
     Dates: start: 20170922, end: 20180827
  4. TEDUGLUTIDE [Suspect]
     Active Substance: TEDUGLUTIDE
     Indication: Short-bowel syndrome
     Dosage: 5 MILLIGRAM, QD
     Route: 042
     Dates: start: 20170922, end: 20180827
  5. TEDUGLUTIDE [Suspect]
     Active Substance: TEDUGLUTIDE
     Dosage: 4.2 MILLIGRAM, QD
     Route: 042
     Dates: start: 20180827, end: 20211007
  6. TEDUGLUTIDE [Suspect]
     Active Substance: TEDUGLUTIDE
     Dosage: 4.2 MILLIGRAM, QD
     Route: 042
     Dates: start: 20180827, end: 20211007
  7. TEDUGLUTIDE [Suspect]
     Active Substance: TEDUGLUTIDE
     Dosage: 4.2 MILLIGRAM, QD
     Route: 042
     Dates: start: 20180827, end: 20211007
  8. TEDUGLUTIDE [Suspect]
     Active Substance: TEDUGLUTIDE
     Dosage: 4.2 MILLIGRAM, QD
     Route: 042
     Dates: start: 20180827, end: 20211007
  9. ELIQUIS [Concomitant]
     Active Substance: APIXABAN
     Indication: Acute myocardial infarction
     Dosage: 5 MILLIGRAM, BID
     Route: 048
     Dates: start: 202006
  10. VORICONAZOLE [Concomitant]
     Active Substance: VORICONAZOLE
     Indication: Vascular device infection
     Dosage: 200 MILLIGRAM, BID
     Route: 042
     Dates: start: 20210505, end: 20210519
  11. MICAFUNGIN [Concomitant]
     Active Substance: MICAFUNGIN SODIUM
     Indication: Vascular device infection
     Dosage: 100 MILLIGRAM, QD
     Route: 042
     Dates: start: 20210502, end: 20210504
  12. CEFAZOLIN [Concomitant]
     Active Substance: CEFAZOLIN
     Indication: Vascular device infection
     Dosage: 2 GRAM, TID
     Route: 042
     Dates: start: 20210429, end: 20210504
  13. DAPTOMYCIN [Concomitant]
     Active Substance: DAPTOMYCIN
     Indication: Bacteraemia
     Dosage: 9999999. MILLIGRAM, QD
     Route: 042
     Dates: start: 20230222, end: 20230307

REACTIONS (2)
  - Staphylococcal bacteraemia [Recovered/Resolved]
  - Device malfunction [Recovered/Resolved]

NARRATIVE: CASE EVENT DATE: 20230211
